FAERS Safety Report 18214610 (Version 1)
Quarter: 2020Q3

REPORT INFORMATION
  Report Type: Spontaneous
  Country: US (occurrence: US)
  Receive Date: 20200831
  Receipt Date: 20200831
  Transmission Date: 20201103
  Serious: Yes (Other)
  Sender: FDA-Public Use
  Company Number: US-FRESENIUS KABI-FK202008806

PATIENT
  Age: 4 Day
  Sex: Male

DRUGS (6)
  1. ZIDOVUDINE. [Suspect]
     Active Substance: ZIDOVUDINE
     Indication: PROPHYLAXIS AGAINST HIV INFECTION
     Dosage: UNKNOWN
     Route: 065
  2. AMPICILLIN [Suspect]
     Active Substance: AMPICILLIN
     Indication: ANTIBIOTIC PROPHYLAXIS
     Dosage: UNKNOWN
     Route: 065
  3. FLUCONAZOLE. [Suspect]
     Active Substance: FLUCONAZOLE
     Indication: ANTIBIOTIC PROPHYLAXIS
     Dosage: UNKNOWN
     Route: 065
  4. GENTAMICIN (MANUFACTURER UNKNOWN) [Suspect]
     Active Substance: GENTAMICIN
     Indication: ANTIBIOTIC PROPHYLAXIS
     Dosage: UNKNOWN
     Route: 065
  5. POVIDONE?IODINE. [Suspect]
     Active Substance: POVIDONE-IODINE
     Indication: PRODUCT USED FOR UNKNOWN INDICATION
     Dosage: UNKNOWN
     Route: 065
  6. CEFTAZIDIME. [Suspect]
     Active Substance: CEFTAZIDIME
     Indication: INFECTION
     Dosage: UNKNOWN
     Route: 042

REACTIONS (2)
  - Fungal skin infection [Recovered/Resolved]
  - Eschar [Recovered/Resolved]
